FAERS Safety Report 19394965 (Version 1)
Quarter: 2021Q2

REPORT INFORMATION
  Report Type: Spontaneous
  Country: AU (occurrence: AU)
  Receive Date: 20210609
  Receipt Date: 20210609
  Transmission Date: 20210717
  Serious: Yes (Death, Hospitalization, Other)
  Sender: FDA-Public Use
  Company Number: AU-INDIVIOR LIMITED-INDV-129898-2021

PATIENT

DRUGS (3)
  1. EPILIM [Concomitant]
     Active Substance: VALPROATE SODIUM
     Indication: PRODUCT USED FOR UNKNOWN INDICATION
     Dosage: 1000 MILLIGRAM, HS
     Route: 065
  2. VENLAFAXINE [Concomitant]
     Active Substance: VENLAFAXINE HYDROCHLORIDE
     Indication: PRODUCT USED FOR UNKNOWN INDICATION
     Dosage: UNK
     Route: 065
  3. SUBLOCADE [Suspect]
     Active Substance: BUPRENORPHINE
     Indication: PAIN
     Dosage: 300 MILLIGRAM, QMO
     Route: 065

REACTIONS (12)
  - Decreased appetite [Unknown]
  - Nausea [Unknown]
  - Delirium [Unknown]
  - Anxiety [Unknown]
  - Vomiting [Unknown]
  - Pancreatitis acute [Unknown]
  - Off label use [Unknown]
  - Haemothorax [Fatal]
  - Oedema peripheral [Unknown]
  - Catheter site infection [Unknown]
  - Pleural effusion [Fatal]
  - Irritability [Unknown]
